FAERS Safety Report 16475741 (Version 5)
Quarter: 2021Q3

REPORT INFORMATION
  Report Type: Spontaneous
  Country: US (occurrence: US)
  Receive Date: 20190625
  Receipt Date: 20210727
  Transmission Date: 20211014
  Serious: Yes (Death, Hospitalization, Other)
  Sender: FDA-Public Use
  Company Number: US-ASTRAZENECA-2019SE11678

PATIENT
  Age: 19395 Day
  Sex: Female
  Weight: 133.8 kg

DRUGS (31)
  1. PRILOSEC [Suspect]
     Active Substance: OMEPRAZOLE MAGNESIUM
     Indication: GASTROOESOPHAGEAL REFLUX DISEASE
     Route: 048
     Dates: start: 19970101, end: 20180101
  2. CARVEDILOL. [Concomitant]
     Active Substance: CARVEDILOL
     Indication: HYPERTENSION
     Dates: start: 20110923, end: 20120223
  3. ACETAMINOPHEN. [Concomitant]
     Active Substance: ACETAMINOPHEN
     Indication: PAIN
  4. FAMOTIDINE/PEPCID [Concomitant]
     Dosage: FAMOTIDINE (OTC)
     Dates: start: 2009, end: 201905
  5. FAMOTIDINE/PEPCID [Concomitant]
     Dosage: PEPCID COMPLETE (OTC)
     Dates: start: 2009, end: 201905
  6. RENVELA [Concomitant]
     Active Substance: SEVELAMER CARBONATE
  7. PREVACID [Suspect]
     Active Substance: LANSOPRAZOLE
     Indication: GASTROOESOPHAGEAL REFLUX DISEASE
     Route: 065
     Dates: start: 199701, end: 201801
  8. FAMOTIDINE/PEPCID [Concomitant]
     Dates: start: 2009, end: 201905
  9. LORATADINE. [Concomitant]
     Active Substance: LORATADINE
  10. THIAMINE. [Concomitant]
     Active Substance: THIAMINE
  11. NYSTATIN. [Concomitant]
     Active Substance: NYSTATIN
  12. PRILOSEC OTC [Suspect]
     Active Substance: OMEPRAZOLE MAGNESIUM
     Indication: GASTROOESOPHAGEAL REFLUX DISEASE
     Route: 048
     Dates: start: 200307, end: 201905
  13. PREVACID [Suspect]
     Active Substance: LANSOPRAZOLE
     Indication: GASTROOESOPHAGEAL REFLUX DISEASE
     Route: 065
     Dates: start: 19970101, end: 20180101
  14. ZANTAC [Concomitant]
     Active Substance: RANITIDINE HYDROCHLORIDE
     Dosage: 75
     Dates: start: 2009, end: 201905
  15. FUROSEMIDE/ LASIX [Concomitant]
     Indication: FLUID RETENTION
     Dates: start: 20100905, end: 20131021
  16. WELLBUTRIN XL [Concomitant]
     Active Substance: BUPROPION HYDROCHLORIDE
     Route: 048
     Dates: start: 20131018
  17. CELEXA [Concomitant]
     Active Substance: CITALOPRAM HYDROBROMIDE
     Route: 048
     Dates: start: 20131018
  18. BENADRYL [Concomitant]
     Active Substance: DIPHENHYDRAMINE HYDROCHLORIDE
     Route: 048
  19. NAPROXEN. [Concomitant]
     Active Substance: NAPROXEN
     Route: 048
  20. NEURONTIN [Concomitant]
     Active Substance: GABAPENTIN
  21. EMLA [Concomitant]
     Active Substance: LIDOCAINE\PRILOCAINE
  22. PRILOSEC [Suspect]
     Active Substance: OMEPRAZOLE MAGNESIUM
     Indication: GASTROOESOPHAGEAL REFLUX DISEASE
     Route: 048
     Dates: start: 20140108
  23. ZANTAC [Concomitant]
     Active Substance: RANITIDINE HYDROCHLORIDE
     Dosage: 150
     Dates: start: 2009, end: 201905
  24. LANTHANUM [Concomitant]
     Active Substance: LANTHANUM
  25. FUROSEMIDE/ LASIX [Concomitant]
     Indication: FLUID RETENTION
     Route: 048
     Dates: start: 20100905, end: 20131021
  26. IBUPROFEN. [Concomitant]
     Active Substance: IBUPROFEN
     Indication: PAIN
  27. TAGAMET HB [Concomitant]
     Active Substance: CIMETIDINE
     Dates: start: 2009, end: 201905
  28. PRILOSEC [Suspect]
     Active Substance: OMEPRAZOLE MAGNESIUM
     Indication: GASTROOESOPHAGEAL REFLUX DISEASE
     Route: 048
     Dates: start: 199701, end: 201801
  29. PRILOSEC [Suspect]
     Active Substance: OMEPRAZOLE MAGNESIUM
     Indication: GASTROOESOPHAGEAL REFLUX DISEASE
     Dosage: GENERIC OMEPRAZOLE
     Route: 065
     Dates: start: 201003, end: 201905
  30. PREVACID 24 HR [Suspect]
     Active Substance: LANSOPRAZOLE
     Indication: GASTROOESOPHAGEAL REFLUX DISEASE
     Route: 065
     Dates: start: 200906, end: 201905
  31. FAMOTIDINE/PEPCID [Concomitant]
     Dosage: PEPCID AC (OTC)
     Dates: start: 2009, end: 201905

REACTIONS (9)
  - Chronic kidney disease [Not Recovered/Not Resolved]
  - Renal failure [Unknown]
  - Tubulointerstitial nephritis [Unknown]
  - End stage renal disease [Not Recovered/Not Resolved]
  - Nephrogenic anaemia [Unknown]
  - Renal injury [Unknown]
  - Acute kidney injury [Not Recovered/Not Resolved]
  - Gastrooesophageal reflux disease [Not Recovered/Not Resolved]
  - Hyperparathyroidism secondary [Unknown]

NARRATIVE: CASE EVENT DATE: 20140630
